FAERS Safety Report 13653339 (Version 1)
Quarter: 2017Q2

REPORT INFORMATION
  Report Type: Spontaneous
  Country: US (occurrence: US)
  Receive Date: 20170614
  Receipt Date: 20170614
  Transmission Date: 20170830
  Serious: Yes (Disabling, Other)
  Sender: FDA-Public Use
  Company Number: US-ROCHE-1056704

PATIENT
  Age: 32 Year
  Sex: Female
  Weight: 63.56 kg

DRUGS (4)
  1. LUPRON [Concomitant]
     Active Substance: LEUPROLIDE ACETATE
     Indication: BREAST CANCER
     Dosage: 7.5
     Route: 065
     Dates: start: 201112
  2. XELODA [Suspect]
     Active Substance: CAPECITABINE
     Indication: BREAST CANCER
     Route: 048
     Dates: start: 201112, end: 201202
  3. TAXOTERE [Suspect]
     Active Substance: DOCETAXEL
     Indication: BREAST CANCER
     Route: 042
     Dates: start: 201112, end: 201202
  4. ZOMETA [Concomitant]
     Active Substance: ZOLEDRONIC ACID
     Indication: METASTASES TO BONE
     Route: 042
     Dates: start: 201112

REACTIONS (6)
  - Pain [Recovered/Resolved]
  - Erythema [Recovered/Resolved]
  - Skin discolouration [Unknown]
  - Skin fissures [Unknown]
  - Hypoaesthesia [Recovering/Resolving]
  - Onycholysis [Recovering/Resolving]

NARRATIVE: CASE EVENT DATE: 201202
